FAERS Safety Report 9191264 (Version 1)
Quarter: 2013Q1

REPORT INFORMATION
  Report Type: Spontaneous
  Country: US (occurrence: US)
  Receive Date: 20130326
  Receipt Date: 20130326
  Transmission Date: 20140127
  Serious: No
  Sender: FDA-Public Use
  Company Number: US-ASTRAZENECA-2013SE15694

PATIENT
  Age: 55 Year
  Sex: Female
  Weight: 68 kg

DRUGS (4)
  1. ARIMIDEX [Suspect]
     Indication: BREAST CANCER FEMALE
     Route: 048
     Dates: start: 201006
  2. CALCIUM MD [Concomitant]
     Indication: BONE DISORDER
     Route: 048
  3. DOCUSATE [Concomitant]
     Indication: CONSTIPATION
     Route: 048
  4. MULTIVITAMIN [Concomitant]
     Dosage: UNK DAILY
     Route: 048

REACTIONS (13)
  - Pain in extremity [Not Recovered/Not Resolved]
  - Grip strength decreased [Not Recovered/Not Resolved]
  - Insomnia [Not Recovered/Not Resolved]
  - Oedema peripheral [Not Recovered/Not Resolved]
  - Weight increased [Not Recovered/Not Resolved]
  - Corneal disorder [Not Recovered/Not Resolved]
  - Dry eye [Not Recovered/Not Resolved]
  - Malaise [Not Recovered/Not Resolved]
  - Fatigue [Not Recovered/Not Resolved]
  - Arthralgia [Not Recovered/Not Resolved]
  - Myalgia [Not Recovered/Not Resolved]
  - Trigger finger [Not Recovered/Not Resolved]
  - Alopecia [Not Recovered/Not Resolved]
